FAERS Safety Report 20977863 (Version 2)
Quarter: 2022Q3

REPORT INFORMATION
  Report Type: Spontaneous
  Country: US (occurrence: US)
  Receive Date: 20220618
  Receipt Date: 20220708
  Transmission Date: 20221026
  Serious: No
  Sender: FDA-Public Use
  Company Number: US-BRISTOL-MYERS SQUIBB COMPANY-2022-055479

PATIENT
  Age: 72 Year
  Sex: Female
  Weight: 80.74 kg

DRUGS (2)
  1. REVLIMID [Suspect]
     Active Substance: LENALIDOMIDE
     Indication: Plasma cell myeloma
     Route: 048
  2. REVLIMID [Suspect]
     Active Substance: LENALIDOMIDE
     Dosage: 3W, 1W OFF
     Route: 048
     Dates: start: 20200501

REACTIONS (2)
  - Full blood count decreased [Unknown]
  - Neutrophil count [Unknown]
